FAERS Safety Report 7721261-7 (Version None)
Quarter: 2011Q3

REPORT INFORMATION
  Report Type: 
  Country: None (occurrence: None)
  Receive Date: 20110831
  Receipt Date: 20110819
  Transmission Date: 20111222
  Serious: Yes (Hospitalization, Other)
  Sender: FDA-Public Use
  Company Number: FR-UCBSA-038032

PATIENT
  Sex: Male

DRUGS (3)
  1. KEPPRA [Suspect]
     Indication: EPILEPSY
     Route: 048
     Dates: start: 20110510, end: 20110607
  2. NO CONCOMITANT MEDICATION [Concomitant]
  3. KEPPRA [Suspect]
     Route: 048
     Dates: start: 20110608

REACTIONS (4)
  - HEPATIC FAILURE [None]
  - PROTHROMBIN TIME RATIO DECREASED [None]
  - COAGULATION FACTOR V LEVEL DECREASED [None]
  - EPILEPSY [None]
